FAERS Safety Report 5325649-3 (Version None)
Quarter: 2007Q2

REPORT INFORMATION
  Report Type: 
  Country: None (occurrence: None)
  Receive Date: 20070509
  Receipt Date: 20070504
  Transmission Date: 20071010
  Serious: No
  Sender: FDA-Public Use
  Company Number: TAP2007Q00597

PATIENT
  Age: 60 Year
  Sex: Female
  Weight: 77.3 kg

DRUGS (5)
  1. PREVACID [Suspect]
     Indication: GASTROOESOPHAGEAL REFLUX DISEASE
     Dosage: 30 MG, 1 IN 1 D, PER ORAL
     Route: 048
     Dates: start: 20070502, end: 20070503
  2. PEPCID COMPLETE (FAMOTIDINE) [Suspect]
     Indication: GASTROOESOPHAGEAL REFLUX DISEASE
     Dosage: 1 TAB, 1 IN 1 D, PER ORAL
     Route: 048
     Dates: start: 20070502
  3. CELEBREX [Concomitant]
  4. FLONASE [Concomitant]
  5. CLARITIN (GLICLAZIDE) [Concomitant]

REACTIONS (4)
  - DIZZINESS [None]
  - NAUSEA [None]
  - NERVOUSNESS [None]
  - VISION BLURRED [None]
